FAERS Safety Report 19454185 (Version 1)
Quarter: 2021Q2

REPORT INFORMATION
  Report Type: Report from Study
  Country: None (occurrence: US)
  Receive Date: 20210623
  Receipt Date: 20210623
  Transmission Date: 20210717
  Serious: Yes (Other)
  Sender: FDA-Public Use
  Company Number: US-ABBVIE-21K-163-3940756-00

PATIENT
  Age: 73 Year
  Sex: Female
  Weight: 122.13 kg

DRUGS (3)
  1. COVID?19 VACCINE [Concomitant]
     Indication: COVID-19 IMMUNISATION
     Dosage: MODERNA
     Route: 030
     Dates: start: 20210427, end: 20210427
  2. COVID?19 VACCINE [Concomitant]
     Dosage: MODERNA
     Route: 030
     Dates: start: 20210521, end: 20210521
  3. HUMIRA [Suspect]
     Active Substance: ADALIMUMAB
     Indication: RHEUMATOID ARTHRITIS
     Route: 058
     Dates: start: 2019, end: 20210523

REACTIONS (6)
  - Bladder cancer [Not Recovered/Not Resolved]
  - Arthralgia [Unknown]
  - Urinary tract infection [Recovered/Resolved]
  - Bladder neoplasm [Recovered/Resolved]
  - Bladder cancer [Recovered/Resolved]
  - Bladder neoplasm [Recovered/Resolved]

NARRATIVE: CASE EVENT DATE: 202103
